FAERS Safety Report 5722929-4 (Version None)
Quarter: 2008Q2

REPORT INFORMATION
  Report Type: 
  Country: None (occurrence: None)
  Receive Date: 20080425
  Receipt Date: 20080416
  Transmission Date: 20081010
  Serious: Yes (Hospitalization)
  Sender: FDA-Public Use
  Company Number: 2008BI009944

PATIENT
  Age: 49 Year
  Sex: Female
  Weight: 52.1637 kg

DRUGS (1)
  1. AVONEX [Suspect]
     Indication: MULTIPLE SCLEROSIS
     Dosage: 30 UG; QW; IM
     Route: 030
     Dates: start: 19971201

REACTIONS (10)
  - ANXIETY [None]
  - APATHY [None]
  - ASTHENIA [None]
  - CONSTIPATION [None]
  - DEPRESSION [None]
  - HAEMOGLOBIN DECREASED [None]
  - HAEMORRHAGE [None]
  - HAEMORRHOIDS [None]
  - HERNIA [None]
  - ULCER [None]
